FAERS Safety Report 19358598 (Version 1)
Quarter: 2021Q2

REPORT INFORMATION
  Report Type: Spontaneous
  Country: US (occurrence: US)
  Receive Date: 20210602
  Receipt Date: 20210602
  Transmission Date: 20210717
  Serious: Yes (Other)
  Sender: FDA-Public Use
  Company Number: None

PATIENT
  Age: 70 Year
  Sex: Female

DRUGS (3)
  1. ENBREL [Suspect]
     Active Substance: ETANERCEPT
     Indication: ARTHRITIS
     Dosage: ?          OTHER FREQUENCY:EVERY WEEK;?
     Route: 058
     Dates: start: 20180125
  2. CYCLOBENZAPR TAB 10MG [Concomitant]
     Dates: start: 20210401
  3. XARELTO [Concomitant]
     Active Substance: RIVAROXABAN
     Dates: start: 20210401

REACTIONS (3)
  - Skin neoplasm excision [None]
  - Musculoskeletal disorder [None]
  - Condition aggravated [None]

NARRATIVE: CASE EVENT DATE: 20210601
